FAERS Safety Report 13051403 (Version 1)
Quarter: 2016Q4

REPORT INFORMATION
  Report Type: Spontaneous
  Country: US (occurrence: US)
  Receive Date: 20161221
  Receipt Date: 20161221
  Transmission Date: 20170207
  Serious: No
  Sender: FDA-Public Use
  Company Number: US-NOVOPROD-478690

PATIENT
  Age: 60 Year
  Sex: Female
  Weight: 90.7 kg

DRUGS (6)
  1. LEVEMIR [Suspect]
     Active Substance: INSULIN DETEMIR
     Dosage: 35 U, ON FOR 2 DAYS AND OFF FOR 3 OR 4 DAYS
     Route: 058
  2. HUMULIN NOS [Suspect]
     Active Substance: INSULIN HUMAN
     Dosage: 45 U, BID, EVERY OTHER DAY
     Route: 058
  3. LEVEMIR [Suspect]
     Active Substance: INSULIN DETEMIR
     Dosage: 35 U, QOD
     Route: 058
  4. HUMULIN NOS [Suspect]
     Active Substance: INSULIN HUMAN
     Dosage: 45 U, BID, FOR 2 DAYS ON AND 3 TO 4 DAYS OFF
     Route: 058
  5. LEVEMIR [Suspect]
     Active Substance: INSULIN DETEMIR
     Indication: TYPE 2 DIABETES MELLITUS
     Dosage: 35 U, QD
     Route: 058
  6. HUMULIN NOS [Suspect]
     Active Substance: INSULIN HUMAN
     Indication: TYPE 2 DIABETES MELLITUS
     Dosage: 45 U, BID
     Route: 058

REACTIONS (3)
  - Palpitations [Recovered/Resolved]
  - Intentional product misuse [Not Recovered/Not Resolved]
  - Tinnitus [Recovered/Resolved]
